FAERS Safety Report 9697530 (Version 2)
Quarter: 2014Q1

REPORT INFORMATION
  Report Type: Spontaneous
  Country: US (occurrence: US)
  Receive Date: 20131120
  Receipt Date: 20140116
  Transmission Date: 20141002
  Serious: Yes (Other)
  Sender: FDA-Public Use
  Company Number: US-ASTRAZENECA-2013SE83613

PATIENT
  Age: 46 Year
  Sex: Male

DRUGS (3)
  1. LISINOPRIL [Suspect]
     Route: 048
  2. HYDROCHLOROTHIAZIDE [Suspect]
  3. CELECOXIB [Suspect]

REACTIONS (4)
  - Metabolic acidosis [Recovering/Resolving]
  - Renal failure acute [Recovering/Resolving]
  - Hypotension [Recovered/Resolved]
  - Anaemia [Unknown]
